FAERS Safety Report 6801664-5 (Version None)
Quarter: 2010Q2

REPORT INFORMATION
  Report Type: 
  Country: None (occurrence: None)
  Receive Date: 20100629
  Receipt Date: 20100621
  Transmission Date: 20101027
  Serious: Yes (Other)
  Sender: FDA-Public Use
  Company Number: MY-BRISTOL-MYERS SQUIBB COMPANY-15158967

PATIENT
  Age: 52 Year
  Sex: Male

DRUGS (4)
  1. STAVUDINE [Suspect]
     Indication: HIV INFECTION
  2. METHADONE [Interacting]
     Dosage: INCREASED TO 60MG/DAY AFTER 4 WEEKS SUBSEQUENTLY 400MG
  3. LAMIVUDINE [Interacting]
     Indication: HIV INFECTION
  4. NEVIRAPINE [Interacting]
     Indication: HIV INFECTION

REACTIONS (2)
  - DRUG INTERACTION [None]
  - WITHDRAWAL SYNDROME [None]
